FAERS Safety Report 5323676-3 (Version None)
Quarter: 2007Q2

REPORT INFORMATION
  Report Type: 
  Country: None (occurrence: None)
  Receive Date: 20070514
  Receipt Date: 20070503
  Transmission Date: 20071010
  Serious: Yes (Death)
  Sender: FDA-Public Use
  Company Number: FR-ROCHE-490463

PATIENT
  Age: 46 Year
  Sex: Male
  Weight: 60 kg

DRUGS (2)
  1. LARIAM [Suspect]
     Indication: DRUG USE FOR UNKNOWN INDICATION
     Route: 048
     Dates: start: 20060902, end: 20060911
  2. LAROXYL [Interacting]
     Route: 048
     Dates: end: 20060911

REACTIONS (5)
  - ASTHENIA [None]
  - DRUG INTERACTION [None]
  - DRY MOUTH [None]
  - HYPERHIDROSIS [None]
  - ROAD TRAFFIC ACCIDENT [None]
